FAERS Safety Report 8737742 (Version 3)
Quarter: 2013Q4

REPORT INFORMATION
  Report Type: Spontaneous
  Country: US (occurrence: US)
  Receive Date: 20120822
  Receipt Date: 20131101
  Transmission Date: 20140711
  Serious: No
  Sender: FDA-Public Use
  Company Number: US-009507513-1208USA003181

PATIENT
  Sex: Male

DRUGS (5)
  1. PEGINTRON [Suspect]
     Indication: HEPATITIS C
     Dosage: 120 MICROGRAM, QW
     Route: 058
     Dates: start: 20120519
  2. RIBASPHERE [Suspect]
     Dosage: UNK
     Dates: start: 20120519
  3. TELAPREVIR [Suspect]
     Dosage: UNK
     Dates: start: 20120519
  4. METFORMIN [Concomitant]
  5. ASPIRIN [Concomitant]

REACTIONS (4)
  - Nephrolithiasis [Unknown]
  - Anaemia [Unknown]
  - Rash [Unknown]
  - Urinary bladder haemorrhage [Unknown]
